FAERS Safety Report 11317148 (Version 1)
Quarter: 2015Q3

REPORT INFORMATION
  Report Type: Spontaneous
  Country: US (occurrence: None)
  Receive Date: 20150727
  Receipt Date: 20150727
  Transmission Date: 20151125
  Serious: Yes (Other)
  Sender: FDA-Public Use
  Company Number: None

PATIENT
  Age: 62 Year
  Sex: Female
  Weight: 46.72 kg

DRUGS (12)
  1. TIROSINT [Concomitant]
     Active Substance: LEVOTHYROXINE SODIUM
  2. LORAZEPAM. [Concomitant]
     Active Substance: LORAZEPAM
  3. ELECTROLYTE WATER ALKALIFE [Concomitant]
  4. SYNTHROID [Suspect]
     Active Substance: LEVOTHYROXINE SODIUM
     Indication: THERAPY CHANGE
     Dosage: TAKEN BY MOUTH
     Route: 048
  5. NAC (TWINLAB) [Concomitant]
  6. SOLGAR SOY-FREE CALCIUM [Concomitant]
  7. LEVOTHYROXINE 50 MCG [Suspect]
     Active Substance: LEVOTHYROXINE
     Indication: AUTOIMMUNE THYROIDITIS
     Route: 048
  8. VITAMIN B COMPLEX [Concomitant]
     Active Substance: CYANOCOBALAMIN\DEXPANTHENOL\NIACINAMIDE\PYRIDOXINE HYDROCHLORIDE\RIBOFLAVIN 5^-PHOSPHATE SODIUM\THIAMINE HYDROCHLORIDE\VITAMIN B COMPLEX
  9. D VITAMINS [Concomitant]
  10. COQ10 JARROW [Concomitant]
  11. CHARCOAL [Concomitant]
     Active Substance: ACTIVATED CHARCOAL
  12. PNEUMONIA VACCINE [Concomitant]
     Active Substance: PNEUMOCOCCAL VACCINE POLYVALENT

REACTIONS (5)
  - Pruritus [None]
  - Rash [None]
  - Food intolerance [None]
  - Reaction to drug excipients [None]
  - Weight decreased [None]

NARRATIVE: CASE EVENT DATE: 20100101
